FAERS Safety Report 9920780 (Version 2)
Quarter: 2014Q1

REPORT INFORMATION
  Report Type: Spontaneous
  Country: US (occurrence: US)
  Receive Date: 20140224
  Receipt Date: 20140224
  Transmission Date: 20141002
  Serious: Yes (Other)
  Sender: FDA-Public Use
  Company Number: US-GE HEALTHCARE MEDICAL DIAGNOSTICS-OSCN-PR-0806S-0368

PATIENT
  Sex: Female

DRUGS (4)
  1. OMNISCAN [Suspect]
     Indication: PRODUCT USED FOR UNKNOWN INDICATION
     Route: 042
     Dates: start: 20040917, end: 20040917
  2. OMNISCAN [Suspect]
     Route: 042
     Dates: start: 20040920, end: 20040920
  3. OMNISCAN [Suspect]
     Route: 042
     Dates: start: 20041012, end: 20041012
  4. OMNISCAN [Suspect]
     Route: 042
     Dates: start: 20050118, end: 20050118

REACTIONS (1)
  - Nephrogenic systemic fibrosis [Not Recovered/Not Resolved]
